FAERS Safety Report 5280932-5 (Version None)
Quarter: 2007Q1

REPORT INFORMATION
  Report Type: 
  Country: None (occurrence: None)
  Receive Date: 20070329
  Receipt Date: 20070320
  Transmission Date: 20070707
  Serious: Yes (Other)
  Sender: FDA-Public Use
  Company Number: FR-ELI_LILLY_AND_COMPANY-FR200703004175

PATIENT
  Age: 82 Year
  Sex: Female

DRUGS (2)
  1. FORTEO [Suspect]
     Indication: OSTEOPOROSIS
     Dosage: 20 UG, DAILY (1/D)
     Route: 058
     Dates: start: 20070209
  2. STABLON [Concomitant]
     Indication: DEPRESSION
     Dosage: 2 D/F, DAILY (1/D)
     Route: 048
     Dates: start: 20030101

REACTIONS (2)
  - DEPRESSED MOOD [None]
  - WEIGHT DECREASED [None]
